FAERS Safety Report 23378784 (Version 1)
Quarter: 2024Q1

REPORT INFORMATION
  Report Type: Spontaneous
  Country: IT (occurrence: IT)
  Receive Date: 20240108
  Receipt Date: 20240108
  Transmission Date: 20240410
  Serious: Yes (Hospitalization)
  Sender: FDA-Public Use
  Company Number: None

PATIENT
  Age: 3 Year
  Sex: Male
  Weight: 16 kg

DRUGS (1)
  1. ADALIMUMAB [Suspect]
     Active Substance: ADALIMUMAB\ISOPROPYL ALCOHOL
     Indication: Accidental exposure to product by child
     Dosage: ACCIDENTAL ADMINISTRATION OF 2.5 MG/KG IN A SINGLE DOSE; ACCIDENTAL SUBCUTANEOUS ADMINISTRATION IN A
     Route: 058
     Dates: start: 20231028, end: 20231028

REACTIONS (2)
  - Oedema [Recovered/Resolved]
  - Accidental exposure to product by child [Recovered/Resolved]

NARRATIVE: CASE EVENT DATE: 20231028
